FAERS Safety Report 4347305-0 (Version None)
Quarter: 2004Q2

REPORT INFORMATION
  Report Type: 
  Country: None (occurrence: None)
  Receive Date: 20040426
  Receipt Date: 20040426
  Transmission Date: 20050107
  Serious: No
  Sender: FDA-Public Use
  Company Number: None

PATIENT
  Sex: Female
  Weight: 68.0396 kg

DRUGS (1)
  1. LARIAM [Suspect]
     Indication: MALARIA PROPHYLAXIS
     Dosage: ONE TAB WEEKLY ORAL
     Route: 048
     Dates: start: 20030513, end: 20030630

REACTIONS (3)
  - EXTRASYSTOLES [None]
  - HEART RATE IRREGULAR [None]
  - TACHYCARDIA [None]
